FAERS Safety Report 16464868 (Version 1)
Quarter: 2019Q2

REPORT INFORMATION
  Report Type: Spontaneous
  Country: US (occurrence: US)
  Receive Date: 20190621
  Receipt Date: 20190621
  Transmission Date: 20190711
  Serious: Yes (Disabling, Other)
  Sender: FDA-Public Use
  Company Number: US-REGENERON PHARMACEUTICALS, INC.-2019-37450

PATIENT

DRUGS (2)
  1. EYLEA [Suspect]
     Active Substance: AFLIBERCEPT
     Indication: AGE-RELATED MACULAR DEGENERATION
     Dosage: 2MG, BILATERAL, EVERY 8 WEEKS
     Route: 031
     Dates: start: 201702
  2. EYLEA [Suspect]
     Active Substance: AFLIBERCEPT
     Dosage: 2MG, EVERY 8 WEEKS, OS
     Route: 031
     Dates: start: 20190607, end: 20190607

REACTIONS (2)
  - Endophthalmitis [Unknown]
  - Blindness unilateral [Unknown]

NARRATIVE: CASE EVENT DATE: 20190607
